FAERS Safety Report 4965691-5 (Version None)
Quarter: 2006Q2

REPORT INFORMATION
  Report Type: 
  Country: None (occurrence: None)
  Receive Date: 20060407
  Receipt Date: 20060331
  Transmission Date: 20061013
  Serious: Yes (Hospitalization)
  Sender: FDA-Public Use
  Company Number: FR-SANOFI-SYNTHELABO-A02200600867

PATIENT
  Sex: Female
  Weight: 60 kg

DRUGS (3)
  1. ELOXATIN [Suspect]
     Indication: DRUG USE FOR UNKNOWN INDICATION
     Route: 042
     Dates: start: 20060321, end: 20060321
  2. CALCIUM FOLINATE [Suspect]
     Indication: DRUG USE FOR UNKNOWN INDICATION
     Route: 042
     Dates: start: 20060321, end: 20060321
  3. AVASTIN [Suspect]
     Indication: DRUG USE FOR UNKNOWN INDICATION
     Route: 042
     Dates: start: 20060321, end: 20060321

REACTIONS (6)
  - BODY TEMPERATURE DECREASED [None]
  - ERYTHEMA [None]
  - HYPERHIDROSIS [None]
  - HYPERTENSION [None]
  - SUFFOCATION FEELING [None]
  - TACHYCARDIA [None]
